FAERS Safety Report 5908597-7 (Version None)
Quarter: 2008Q4

REPORT INFORMATION
  Report Type: 
  Country: None (occurrence: None)
  Receive Date: 20081001
  Receipt Date: 20080924
  Transmission Date: 20090506
  Serious: Yes (Hospitalization, Other)
  Sender: FDA-Public Use
  Company Number: TPA2008A01240

PATIENT
  Age: 61 Year
  Sex: Female
  Weight: 132.9039 kg

DRUGS (12)
  1. ACTOS [Suspect]
     Indication: TYPE 2 DIABETES MELLITUS
     Dosage: 15 MG, 1 IN 1 D, PER ORAL; 30 MG, 1 IN 1 D, PER ORAL; 45 MG, 1 IN 1 D, PER ORAL
     Route: 048
     Dates: start: 20040501, end: 20041101
  2. ACTOS [Suspect]
     Indication: TYPE 2 DIABETES MELLITUS
     Dosage: 15 MG, 1 IN 1 D, PER ORAL; 30 MG, 1 IN 1 D, PER ORAL; 45 MG, 1 IN 1 D, PER ORAL
     Route: 048
     Dates: start: 20041101, end: 20050401
  3. ACTOS [Suspect]
     Indication: TYPE 2 DIABETES MELLITUS
     Dosage: 15 MG, 1 IN 1 D, PER ORAL; 30 MG, 1 IN 1 D, PER ORAL; 45 MG, 1 IN 1 D, PER ORAL
     Route: 048
     Dates: start: 20050401, end: 20080701
  4. METFORMIN HCL [Concomitant]
  5. GLIPIZIDE [Concomitant]
  6. CARBAMAZEPINE [Concomitant]
  7. FUROSEMIDE [Concomitant]
  8. LIPITOR [Concomitant]
  9. QUINAPRIL HCL [Concomitant]
  10. KLOR-CON [Concomitant]
  11. AMLODIPINE [Concomitant]
  12. LANTUS [Concomitant]

REACTIONS (10)
  - BLISTER [None]
  - CELLULITIS [None]
  - DYSPNOEA [None]
  - GAIT DISTURBANCE [None]
  - HYPERTENSION [None]
  - JOINT SWELLING [None]
  - OEDEMA PERIPHERAL [None]
  - PAIN IN EXTREMITY [None]
  - VENOUS INSUFFICIENCY [None]
  - WEIGHT INCREASED [None]
